FAERS Safety Report 8501693-X (Version None)
Quarter: 2012Q3

REPORT INFORMATION
  Report Type: 
  Country: None (occurrence: None)
  Receive Date: 20120711
  Receipt Date: 20120702
  Transmission Date: 20120928
  Serious: Yes (Hospitalization)
  Sender: FDA-Public Use
  Company Number: US-BIOGENIDEC-2012BI005737

PATIENT
  Age: 54 Year
  Sex: Female

DRUGS (1)
  1. TYSABRI [Suspect]
     Indication: MULTIPLE SCLEROSIS
     Route: 042
     Dates: start: 20100303, end: 20111214

REACTIONS (5)
  - URINARY TRACT INFECTION [None]
  - INSOMNIA [None]
  - UROSEPSIS [None]
  - MOBILITY DECREASED [None]
  - KIDNEY INFECTION [None]
